FAERS Safety Report 15846277 (Version 2)
Quarter: 2019Q1

REPORT INFORMATION
  Report Type: Report from Study
  Country: PH (occurrence: PH)
  Receive Date: 20190120
  Receipt Date: 20190201
  Transmission Date: 20190417
  Serious: Yes (Death)
  Sender: FDA-Public Use
  Company Number: PHHY2019PH011891

PATIENT
  Sex: Female

DRUGS (1)
  1. EXJADE [Suspect]
     Active Substance: DEFERASIROX
     Indication: PRODUCT USED FOR UNKNOWN INDICATION
     Dosage: 500 MG, UNK
     Route: 048
     Dates: start: 20180905

REACTIONS (7)
  - Ocular hyperaemia [Fatal]
  - Ocular icterus [Fatal]
  - Diarrhoea [Fatal]
  - Oedema peripheral [Fatal]
  - Pruritus [Fatal]
  - Dyspnoea [Fatal]
  - Abdominal pain upper [Fatal]
